FAERS Safety Report 5659432-6 (Version None)
Quarter: 2008Q1

REPORT INFORMATION
  Report Type: 
  Country: None (occurrence: None)
  Receive Date: 20080311
  Receipt Date: 20080306
  Transmission Date: 20080703
  Serious: Yes (Other)
  Sender: FDA-Public Use
  Company Number: US-BRISTOL-MYERS SQUIBB COMPANY-14099089

PATIENT
  Age: 77 Year
  Sex: Male
  Weight: 95 kg

DRUGS (3)
  1. CARBIDOPA AND LEVODOPA [Suspect]
     Indication: PARKINSON'S DISEASE
     Dosage: STRENGTH: 25MG/100MG; 1 DOSAGE FORM = 1.5 TABLETS
  2. PRAMIPEXOLE HCL [Suspect]
     Indication: PARKINSON'S DISEASE
  3. ENTACAPONE [Suspect]
     Indication: PARKINSON'S DISEASE

REACTIONS (2)
  - DRUG INTERACTION [None]
  - PARKINSON'S DISEASE [None]
